FAERS Safety Report 7081086-5 (Version None)
Quarter: 2010Q4

REPORT INFORMATION
  Report Type: 
  Country: None (occurrence: None)
  Receive Date: 20101103
  Receipt Date: 20101022
  Transmission Date: 20110411
  Serious: Yes (Other)
  Sender: FDA-Public Use
  Company Number: US-AMGEN-USASP2010001218

PATIENT

DRUGS (3)
  1. ARANESP [Suspect]
     Indication: RENAL TRANSPLANT
     Dosage: 100 A?G, UNK
     Dates: start: 20040101, end: 20101012
  2. EPOGEN [Suspect]
     Indication: RENAL TRANSPLANT
     Dates: start: 20050101
  3. SENSIPAR [Suspect]
     Indication: RENAL TRANSPLANT
     Dosage: 30 MG, UNK
     Dates: start: 20050101

REACTIONS (6)
  - ANAEMIA [None]
  - CARDIOMEGALY [None]
  - FATIGUE [None]
  - HAEMOGLOBIN ABNORMAL [None]
  - PALPITATIONS [None]
  - RENAL DISORDER [None]
